FAERS Safety Report 25706029 (Version 1)
Quarter: 2025Q3

REPORT INFORMATION
  Report Type: Other
  Country: EU (occurrence: EU)
  Receive Date: 20250820
  Receipt Date: 20250820
  Transmission Date: 20251021
  Serious: Yes (Hospitalization, Other)
  Sender: INCYTE
  Company Number: EU-Pharmaand-2025000943

PATIENT
  Age: 9 Year

DRUGS (6)
  1. RUXOLITINIB [Suspect]
     Active Substance: RUXOLITINIB
     Indication: Product used for unknown indication
     Route: 065
  2. PROPRANOLOL [Suspect]
     Active Substance: PROPRANOLOL HYDROCHLORIDE
     Indication: Product used for unknown indication
     Route: 065
  3. HYDROXYUREA [Suspect]
     Active Substance: HYDROXYUREA
     Indication: Product used for unknown indication
     Route: 065
  4. PEGASYS [Suspect]
     Active Substance: PEGINTERFERON ALFA-2A
     Indication: Polycythaemia vera
     Route: 065
  5. TRIHEPTANOIN [Suspect]
     Active Substance: TRIHEPTANOIN
     Indication: Product used for unknown indication
     Route: 065
  6. FLUINDIONE [Suspect]
     Active Substance: FLUINDIONE
     Indication: Product used for unknown indication
     Route: 065

REACTIONS (14)
  - Abdominal pain [Unknown]
  - Actinic keratosis [Unknown]
  - Anaemia [Unknown]
  - Basal cell carcinoma [Unknown]
  - Diarrhoea [Unknown]
  - Exercise tolerance decreased [Unknown]
  - Fatigue [Unknown]
  - Haemoglobin decreased [Unknown]
  - Headache [Unknown]
  - Multiple-drug resistance [Unknown]
  - Nausea [Unknown]
  - Product administered to patient of inappropriate age [Unknown]
  - Squamous cell carcinoma [Unknown]
  - Vomiting [Unknown]
